FAERS Safety Report 14081050 (Version 1)
Quarter: 2017Q4

REPORT INFORMATION
  Report Type: Spontaneous
  Country: US (occurrence: US)
  Receive Date: 20171012
  Receipt Date: 20171012
  Transmission Date: 20180321
  Serious: No
  Sender: FDA-Public Use
  Company Number: None

PATIENT
  Age: 74 Year
  Sex: Female

DRUGS (2)
  1. LIDODERM 5 [Suspect]
     Active Substance: LIDOCAINE
     Indication: PAIN
     Dosage: ?          QUANTITY:1 PATCH(ES);?
     Route: 061
  2. ASA [Concomitant]
     Active Substance: ASPIRIN

REACTIONS (4)
  - Product adhesion issue [None]
  - Application site erosion [None]
  - Product quality issue [None]
  - Rash [None]

NARRATIVE: CASE EVENT DATE: 20170712
